FAERS Safety Report 7956724-2 (Version None)
Quarter: 2011Q4

REPORT INFORMATION
  Report Type: 
  Country: None (occurrence: None)
  Receive Date: 20111205
  Receipt Date: 20111129
  Transmission Date: 20120403
  Serious: Yes (Other)
  Sender: FDA-Public Use
  Company Number: CA-PFIZER INC-2011279597

PATIENT
  Age: 41 Year
  Sex: Male
  Weight: 253.52 kg

DRUGS (2)
  1. AMIODARONE HCL [Suspect]
     Indication: VENTRICULAR TACHYCARDIA
  2. AMIODARONE HCL [Suspect]
     Indication: VENTRICULAR FIBRILLATION
     Dosage: 200 MG, DAILY

REACTIONS (3)
  - HYPOTHYROIDISM [None]
  - LOW DENSITY LIPOPROTEIN INCREASED [None]
  - DYSLIPIDAEMIA [None]
